FAERS Safety Report 8584019-5 (Version None)
Quarter: 2012Q3

REPORT INFORMATION
  Report Type: 
  Country: None (occurrence: None)
  Receive Date: 20120810
  Receipt Date: 20120726
  Transmission Date: 20120928
  Serious: Yes (Other)
  Sender: FDA-Public Use
  Company Number: US-009507513-1207USA011988

PATIENT

DRUGS (5)
  1. PEGASYS [Suspect]
     Route: 058
  2. VICTRELIS [Suspect]
     Route: 048
  3. COPEGUS [Suspect]
     Route: 048
  4. EPREX [Concomitant]
     Dosage: 40000 IU, UNK
     Route: 058
  5. VALIUM [Concomitant]

REACTIONS (9)
  - DEPRESSION [None]
  - DIARRHOEA [None]
  - DEAFNESS UNILATERAL [None]
  - ANGER [None]
  - HYPERHIDROSIS [None]
  - VOMITING [None]
  - MIGRAINE [None]
  - BLINDNESS [None]
  - NAUSEA [None]
